FAERS Safety Report 14912892 (Version 1)
Quarter: 2018Q2

REPORT INFORMATION
  Report Type: Spontaneous
  Country: US (occurrence: US)
  Receive Date: 20180501
  Receipt Date: 20180501
  Transmission Date: 20180711
  Serious: Yes (Hospitalization)
  Sender: FDA-Public Use
  Company Number: None

PATIENT
  Age: 62 Year
  Sex: Female

DRUGS (14)
  1. MAGNESIUM-OX [Concomitant]
  2. CIPROFLOXACN [Concomitant]
     Active Substance: CIPROFLOXACIN
  3. NATEGLINDE TAB [Concomitant]
  4. LETROZOLE. [Concomitant]
     Active Substance: LETROZOLE
  5. TRAMADOL. [Concomitant]
     Active Substance: TRAMADOL
  6. AFINITOR [Suspect]
     Active Substance: EVEROLIMUS
     Indication: ENDOMETRIAL CANCER
     Route: 048
     Dates: start: 20180430
  7. SOD CHLORIDE [Concomitant]
  8. FERROUS SULF [Concomitant]
     Active Substance: FERROUS SULFATE
  9. MEGESGTROL [Concomitant]
  10. LEVOTHYROXIN [Concomitant]
     Active Substance: LEVOTHYROXINE
  11. LETFROZOLE [Concomitant]
  12. LEVETIRACETA [Concomitant]
  13. METFORMIN [Concomitant]
     Active Substance: METFORMIN HYDROCHLORIDE
  14. ROSUVASTATIN. [Concomitant]
     Active Substance: ROSUVASTATIN

REACTIONS (1)
  - Transfusion [None]

NARRATIVE: CASE EVENT DATE: 20180430
